FAERS Safety Report 7412307-4 (Version None)
Quarter: 2011Q2

REPORT INFORMATION
  Report Type: 
  Country: None (occurrence: None)
  Receive Date: 20110413
  Receipt Date: 20110401
  Transmission Date: 20111010
  Serious: Yes (Other)
  Sender: FDA-Public Use
  Company Number: JP-ROCHE-770231

PATIENT
  Age: 58 Year
  Sex: Female

DRUGS (11)
  1. DIAZEPAM [Suspect]
     Dosage: DOSAGE IS UNCERTAIN.
     Route: 048
  2. LEVOTOMIN [Suspect]
     Dosage: DOSAGE UNCERTAIN
     Route: 048
  3. PAXIL [Suspect]
     Dosage: DOSAGE IS UNCERTAIN.
     Route: 048
  4. HIBERNA [Suspect]
     Dosage: DOSAGE IS UNCERTAIN.
     Route: 048
  5. ATARAX [Suspect]
     Dosage: DOSAGE IS UNCERTAIN
     Route: 048
  6. ROHYPNOL [Suspect]
     Dosage: DOSAGE IS UNCERTAIN
     Route: 048
  7. AMOBAN [Suspect]
     Dosage: DOASGE IS UNCERTAIN
     Route: 048
  8. EURODIN [Suspect]
     Dosage: DOSAGE IS UNCERTAIN
     Route: 048
  9. DEPAS [Suspect]
     Dosage: DOSAGE IS UNCERTAIN.
     Route: 048
  10. LEXOTAN [Suspect]
     Dosage: DOSAGE IS UNCERTAIN.
     Route: 048
  11. BENZALIN [Suspect]
     Dosage: DOSAGE IS UNCERATIN.
     Route: 048

REACTIONS (2)
  - AGGRESSION [None]
  - HOMICIDE [None]
